FAERS Safety Report 16517683 (Version 1)
Quarter: 2019Q3

REPORT INFORMATION
  Report Type: Spontaneous
  Country: BE (occurrence: BE)
  Receive Date: 20190702
  Receipt Date: 20190702
  Transmission Date: 20191004
  Serious: Yes (Death, Hospitalization, Other)
  Sender: FDA-Public Use
  Company Number: BE-009507513-1906BEL010315

PATIENT
  Age: 54 Year
  Sex: Male
  Weight: 88 kg

DRUGS (1)
  1. KEYTRUDA [Suspect]
     Active Substance: PEMBROLIZUMAB
     Dosage: UNK
     Dates: start: 20190129

REACTIONS (5)
  - Hypovolaemic shock [Unknown]
  - Pneumonitis [Recovering/Resolving]
  - Gastrointestinal obstruction [Unknown]
  - Gastrointestinal obstruction [Recovered/Resolved]
  - Gastrointestinal obstruction [Fatal]

NARRATIVE: CASE EVENT DATE: 20190215
